FAERS Safety Report 7968451-6 (Version None)
Quarter: 2011Q4

REPORT INFORMATION
  Report Type: 
  Country: None (occurrence: None)
  Receive Date: 20111122
  Receipt Date: 20110720
  Transmission Date: 20120403
  Serious: No
  Sender: FDA-Public Use
  Company Number: PHHY2011US70113

PATIENT

DRUGS (1)
  1. GILENYA [Suspect]
     Dosage: UKN, OT

REACTIONS (1)
  - GASTROINTESTINAL DISORDER [None]
